FAERS Safety Report 9523214 (Version 1)
Quarter: 2013Q3

REPORT INFORMATION
  Report Type: Spontaneous
  Country: ES (occurrence: ES)
  Receive Date: 20130913
  Receipt Date: 20130913
  Transmission Date: 20140515
  Serious: Yes (Other)
  Sender: FDA-Public Use
  Company Number: ES-TEVA-430282ISR

PATIENT
  Age: 66 Year
  Sex: Female

DRUGS (6)
  1. AZILECT [Suspect]
     Indication: MOTOR DYSFUNCTION
     Dosage: 1 MILLIGRAM DAILY;
  2. LEVODOPA, CARBIDOPA [Suspect]
     Indication: PARKINSON^S DISEASE
     Dosage: 1 TABLET DAILY; AT NIGHT
  3. CARBIDOPA W/ENTACAPONE W/LEVODOPA [Suspect]
     Indication: PARKINSON^S DISEASE
     Dosage: 2 TABLET DAILY;
  4. CARBIDOPA W/ENTACAPONE W/LEVODOPA [Suspect]
     Dosage: 4 TABLET DAILY;
  5. AMANTADINE [Suspect]
     Indication: PARKINSON^S DISEASE
     Dosage: 2 TABLET DAILY;
  6. DULOXETINE [Suspect]
     Indication: DEPRESSION
     Dosage: 90 MILLIGRAM DAILY;

REACTIONS (1)
  - Serotonin syndrome [Recovered/Resolved]
